FAERS Safety Report 21784173 (Version 2)
Quarter: 2022Q4

REPORT INFORMATION
  Report Type: Spontaneous
  Country: IT (occurrence: IT)
  Receive Date: 20221227
  Receipt Date: 20221229
  Transmission Date: 20230113
  Serious: Yes (Other)
  Sender: FDA-Public Use
  Company Number: IT-ACRAF SpA-2022-029298

PATIENT

DRUGS (1)
  1. XCOPRI [Suspect]
     Active Substance: CENOBAMATE
     Indication: Partial seizures
     Route: 048

REACTIONS (3)
  - Cystitis [Unknown]
  - Blood pressure increased [Unknown]
  - Syncope [Unknown]
